FAERS Safety Report 5505449-1 (Version None)
Quarter: 2007Q4

REPORT INFORMATION
  Report Type: 
  Country: None (occurrence: None)
  Receive Date: 20071030
  Receipt Date: 20070705
  Transmission Date: 20080405
  Serious: No
  Sender: FDA-Public Use
  Company Number: 265233

PATIENT
  Age: 54 Year
  Sex: Male
  Weight: 202 kg

DRUGS (2)
  1. LEVEMIR [Suspect]
     Indication: TYPE 1 DIABETES MELLITUS
     Dosage: 50 IU, QD, SUBCUTANEOUS
     Route: 058
     Dates: start: 20060701
  2. BYETTA (EXENATIDE, EXENATIDE) [Concomitant]

REACTIONS (2)
  - INJECTION SITE PRURITUS [None]
  - INJECTION SITE RASH [None]
